FAERS Safety Report 24356695 (Version 8)
Quarter: 2025Q3

REPORT INFORMATION
  Report Type: Other
  Country: CA (occurrence: CA)
  Receive Date: 20240924
  Receipt Date: 20250925
  Transmission Date: 20251021
  Serious: Yes (Hospitalization, Other)
  Sender: APOTEX
  Company Number: CA-APOTEX-2024AP010648

PATIENT
  Age: 30 Year
  Sex: Female
  Weight: 99 kg

DRUGS (39)
  1. RAMIPRIL [Suspect]
     Active Substance: RAMIPRIL
     Indication: Product used for unknown indication
     Route: 048
  2. ROSUVASTATIN [Suspect]
     Active Substance: ROSUVASTATIN
     Indication: Product used for unknown indication
     Route: 048
  3. COVID-19 VACCINE NOS [Suspect]
     Active Substance: COVID-19 VACCINE
     Indication: COVID-19 immunisation
     Route: 030
  4. MESALAMINE [Suspect]
     Active Substance: MESALAMINE
     Indication: Product used for unknown indication
     Route: 065
  5. REPLAGAL [Suspect]
     Active Substance: AGALSIDASE ALFA
     Indication: Fabry^s disease
     Dosage: 6 DOSAGE FORM, B.I.WK.
     Route: 050
  6. REPLAGAL [Suspect]
     Active Substance: AGALSIDASE ALFA
     Dosage: 6 DOSAGE FORM, Q.O.WK.
     Route: 050
  7. REPLAGAL [Suspect]
     Active Substance: AGALSIDASE ALFA
     Dosage: 6 DOSAGE FORM, Q.O.WK.
     Route: 042
  8. REPLAGAL [Suspect]
     Active Substance: AGALSIDASE ALFA
     Dosage: 20.86 MILLIGRAM, Q.O.WK.
     Route: 050
  9. REPLAGAL [Suspect]
     Active Substance: AGALSIDASE ALFA
     Route: 050
  10. REPLAGAL [Suspect]
     Active Substance: AGALSIDASE ALFA
     Dosage: 21.66 MILLIGRAM, Q.O.WK.
     Route: 050
  11. REPLAGAL [Suspect]
     Active Substance: AGALSIDASE ALFA
     Dosage: 20.86 MILLIGRAM, Q.WK.
     Route: 050
  12. REPLAGAL [Suspect]
     Active Substance: AGALSIDASE ALFA
     Route: 050
  13. REPLAGAL [Suspect]
     Active Substance: AGALSIDASE ALFA
     Route: 050
  14. REPLAGAL [Suspect]
     Active Substance: AGALSIDASE ALFA
     Dosage: UNK
     Route: 042
  15. REPLAGAL [Suspect]
     Active Substance: AGALSIDASE ALFA
     Dosage: UNK, Q.O.WK.
     Route: 042
  16. REPLAGAL [Suspect]
     Active Substance: AGALSIDASE ALFA
     Dosage: UNK, Q.O.WK.
     Route: 050
  17. REPLAGAL [Suspect]
     Active Substance: AGALSIDASE ALFA
     Dosage: 20.78 MILLIGRAM, Q.O.WK.
     Route: 050
  18. REPLAGAL [Suspect]
     Active Substance: AGALSIDASE ALFA
     Dosage: 20.78 MILLIGRAM, Q.O.WK.
     Route: 042
  19. MESALAMINE [Suspect]
     Active Substance: MESALAMINE
     Indication: Product used for unknown indication
     Route: 065
  20. ASPIRIN [Concomitant]
     Active Substance: ASPIRIN
     Indication: Product used for unknown indication
     Route: 048
  21. CAL MAG [CALCIUM CARBONATE;MAGNESIUM] [Concomitant]
     Indication: Product used for unknown indication
     Route: 065
  22. CALCIUM CARBONATE\MAGNESIUM CARBONATE\MAGNESIUM TRISILICATE [Concomitant]
     Active Substance: CALCIUM CARBONATE\MAGNESIUM CARBONATE\MAGNESIUM TRISILICATE
     Indication: Product used for unknown indication
     Route: 065
  23. CYANOCOBALAMIN ZINC TANNATE [Concomitant]
     Indication: Product used for unknown indication
     Route: 048
  24. DICLECTIN [Concomitant]
     Active Substance: DOXYLAMINE SUCCINATE\PYRIDOXINE HYDROCHLORIDE
     Indication: Product used for unknown indication
     Route: 065
  25. DOXYLAMINE [Concomitant]
     Active Substance: DOXYLAMINE
     Indication: Product used for unknown indication
     Route: 065
  26. ERGOCALCIFEROL [Concomitant]
     Active Substance: ERGOCALCIFEROL
     Indication: Product used for unknown indication
     Route: 065
  27. ETONOGESTREL [Concomitant]
     Active Substance: ETONOGESTREL
     Indication: Product used for unknown indication
     Route: 023
  28. IMODIUM [Concomitant]
     Active Substance: LOPERAMIDE HYDROCHLORIDE
     Indication: Product used for unknown indication
     Route: 065
  29. IMODIUM [Concomitant]
     Active Substance: LOPERAMIDE HYDROCHLORIDE
     Route: 048
  30. LIOTHYRONINE SODIUM [Concomitant]
     Active Substance: LIOTHYRONINE SODIUM
     Indication: Product used for unknown indication
     Route: 065
  31. MAGNESIUM PIDOLATE [Concomitant]
     Active Substance: MAGNESIUM PIDOLATE
     Indication: Product used for unknown indication
     Route: 065
  32. MIRENA [Concomitant]
     Active Substance: LEVONORGESTREL
     Indication: Product used for unknown indication
     Route: 015
  33. MIRENA [Concomitant]
     Active Substance: LEVONORGESTREL
     Route: 065
  34. SERTRALINE HYDROCHLORIDE [Concomitant]
     Active Substance: SERTRALINE HYDROCHLORIDE
     Indication: Depression
     Route: 048
  35. TYLENOL [Concomitant]
     Active Substance: ACETAMINOPHEN
     Indication: Product used for unknown indication
     Route: 065
  36. ZANTAC [Concomitant]
     Active Substance: RANITIDINE HYDROCHLORIDE
     Indication: Product used for unknown indication
     Route: 065
  37. GRAVOL [Concomitant]
     Active Substance: DIMENHYDRINATE
     Indication: Product used for unknown indication
     Route: 048
  38. ALBUTEROL [Concomitant]
     Active Substance: ALBUTEROL
     Indication: Product used for unknown indication
     Route: 065
  39. TEGRETOL [Concomitant]
     Active Substance: CARBAMAZEPINE
     Indication: Product used for unknown indication
     Route: 065

REACTIONS (54)
  - Appetite disorder [Not Recovered/Not Resolved]
  - Blood pressure increased [Not Recovered/Not Resolved]
  - Body temperature increased [Not Recovered/Not Resolved]
  - COVID-19 [Not Recovered/Not Resolved]
  - Chest discomfort [Not Recovered/Not Resolved]
  - Cholestasis of pregnancy [Not Recovered/Not Resolved]
  - Haematochezia [Not Recovered/Not Resolved]
  - Heart rate increased [Not Recovered/Not Resolved]
  - Hypoacusis [Not Recovered/Not Resolved]
  - Illness [Not Recovered/Not Resolved]
  - Mental disorder [Not Recovered/Not Resolved]
  - Morning sickness [Not Recovered/Not Resolved]
  - Muscle spasms [Not Recovered/Not Resolved]
  - Nasal congestion [Not Recovered/Not Resolved]
  - Nasopharyngitis [Not Recovered/Not Resolved]
  - Oropharyngeal pain [Not Recovered/Not Resolved]
  - Panic attack [Not Recovered/Not Resolved]
  - Pre-eclampsia [Not Recovered/Not Resolved]
  - Protein urine present [Not Recovered/Not Resolved]
  - Skin discolouration [Not Recovered/Not Resolved]
  - Tearfulness [Not Recovered/Not Resolved]
  - Inappropriate schedule of product administration [Not Recovered/Not Resolved]
  - Maternal exposure during breast feeding [Not Recovered/Not Resolved]
  - Exposure during pregnancy [Not Recovered/Not Resolved]
  - Product dose omission issue [Not Recovered/Not Resolved]
  - Product use issue [Not Recovered/Not Resolved]
  - Hand-foot-and-mouth disease [Not Recovered/Not Resolved]
  - Throat irritation [Not Recovered/Not Resolved]
  - Weight decreased [Not Recovered/Not Resolved]
  - Rhinorrhoea [Not Recovered/Not Resolved]
  - Product dose omission in error [Not Recovered/Not Resolved]
  - Pain in extremity [Not Recovered/Not Resolved]
  - Brain fog [Not Recovered/Not Resolved]
  - Pain [Not Recovered/Not Resolved]
  - Pruritus [Not Recovered/Not Resolved]
  - Obstruction [Not Recovered/Not Resolved]
  - Brain fog [Not Recovered/Not Resolved]
  - Hyperhidrosis [Not Recovered/Not Resolved]
  - Skin papilloma [Not Recovered/Not Resolved]
  - Paraesthesia [Not Recovered/Not Resolved]
  - Pyrexia [Not Recovered/Not Resolved]
  - Depression [Not Recovered/Not Resolved]
  - Anxiety [Not Recovered/Not Resolved]
  - Weight increased [Not Recovered/Not Resolved]
  - Malaise [Not Recovered/Not Resolved]
  - Depressed mood [Not Recovered/Not Resolved]
  - Chest pain [Not Recovered/Not Resolved]
  - Nausea [Not Recovered/Not Resolved]
  - Vomiting [Not Recovered/Not Resolved]
  - Cough [Not Recovered/Not Resolved]
  - Headache [Not Recovered/Not Resolved]
  - Fatigue [Not Recovered/Not Resolved]
  - Blood pressure decreased [Not Recovered/Not Resolved]
  - Dizziness [Not Recovered/Not Resolved]
